FAERS Safety Report 18748510 (Version 1)
Quarter: 2021Q1

REPORT INFORMATION
  Report Type: Spontaneous
  Country: US (occurrence: US)
  Receive Date: 20210115
  Receipt Date: 20210115
  Transmission Date: 20210419
  Serious: Yes (Other)
  Sender: FDA-Public Use
  Company Number: US-BAUSCH-BL-2021-001754

PATIENT
  Age: 56 Year
  Sex: Female

DRUGS (1)
  1. UCERIS [Suspect]
     Active Substance: BUDESONIDE
     Indication: COLITIS ULCERATIVE
     Dosage: LAST DOSE TAKEN IN DEC/2018 OR JAN/2019
     Route: 048
     Dates: start: 2018

REACTIONS (2)
  - Colitis ulcerative [Not Recovered/Not Resolved]
  - Treatment noncompliance [Unknown]
